FAERS Safety Report 9269454 (Version 1)
Quarter: 2013Q2

REPORT INFORMATION
  Report Type: Spontaneous
  Country: KR (occurrence: KR)
  Receive Date: 20130503
  Receipt Date: 20130607
  Transmission Date: 20140414
  Serious: Yes (Hospitalization)
  Sender: FDA-Public Use
  Company Number: KR-JNJFOC-20130416224

PATIENT
  Age: 7 Year
  Sex: Male

DRUGS (2)
  1. CHILDREN^S TYLENOL [Suspect]
     Indication: PYREXIA
     Route: 048
     Dates: start: 201304, end: 201304
  2. CHILDREN^S TYLENOL [Suspect]
     Indication: NASOPHARYNGITIS
     Route: 048
     Dates: start: 201304, end: 201304

REACTIONS (3)
  - Gastritis [Recovered/Resolved]
  - Overdose [Unknown]
  - Drug ineffective [Unknown]
